FAERS Safety Report 19167417 (Version 1)
Quarter: 2021Q2

REPORT INFORMATION
  Report Type: Spontaneous
  Country: US (occurrence: US)
  Receive Date: 20210420
  Receipt Date: 20210420
  Transmission Date: 20210717
  Serious: Yes (Hospitalization)
  Sender: FDA-Public Use
  Company Number: None

PATIENT
  Age: 69 Year
  Sex: Male
  Weight: 73.53 kg

DRUGS (1)
  1. CLINDAMYCIN. [Suspect]
     Active Substance: CLINDAMYCIN
     Indication: TOOTH EXTRACTION
     Dates: start: 20210405, end: 20210405

REACTIONS (7)
  - Cholecystitis [None]
  - Vomiting [None]
  - Drug-induced liver injury [None]
  - Fatigue [None]
  - Nausea [None]
  - Chills [None]
  - Liver injury [None]

NARRATIVE: CASE EVENT DATE: 20210411
